FAERS Safety Report 11009757 (Version 1)
Quarter: 2015Q2

REPORT INFORMATION
  Report Type: Spontaneous
  Country: US (occurrence: None)
  Receive Date: 20150409
  Receipt Date: 20150409
  Transmission Date: 20150821
  Serious: Yes (Disabling)
  Sender: FDA-Public Use
  Company Number: None

PATIENT
  Age: 45 Year
  Sex: Female
  Weight: 69.4 kg

DRUGS (6)
  1. PILOCARPINE HCL [Suspect]
     Active Substance: PILOCARPINE HYDROCHLORIDE
     Indication: DRY EYE
     Dosage: DOSE: 1?FREQUENCY: UP TO 3X^S A DAY?ROUTE: TAKEN BY MOUTH
     Route: 048
     Dates: start: 20130901, end: 20150401
  2. PRENATAL VITAMINS [Concomitant]
     Active Substance: VITAMINS
  3. PILOCARPINE HCL [Suspect]
     Active Substance: PILOCARPINE HYDROCHLORIDE
     Indication: DRY MOUTH
     Dosage: DOSE: 1?FREQUENCY: UP TO 3X^S A DAY?ROUTE: TAKEN BY MOUTH
     Route: 048
     Dates: start: 20130901, end: 20150401
  4. CITALOPRAM [Concomitant]
     Active Substance: CITALOPRAM HYDROBROMIDE
  5. PLAQUENIL [Concomitant]
     Active Substance: HYDROXYCHLOROQUINE SULFATE
  6. SULFASALAZINE. [Concomitant]
     Active Substance: SULFASALAZINE

REACTIONS (1)
  - Abnormal weight gain [None]

NARRATIVE: CASE EVENT DATE: 20130901
